FAERS Safety Report 7565630-7 (Version None)
Quarter: 2011Q2

REPORT INFORMATION
  Report Type: 
  Country: None (occurrence: None)
  Receive Date: 20110623
  Receipt Date: 20110614
  Transmission Date: 20111010
  Serious: Yes (Other)
  Sender: FDA-Public Use
  Company Number: IR-PAR PHARMACEUTICAL, INC-2011SCPR003063

PATIENT
  Age: 22 Year
  Sex: Female

DRUGS (1)
  1. CABERGOLINE [Suspect]
     Indication: GALACTORRHOEA
     Dosage: 0.5 MG ONE TABLET PER WEEK
     Route: 048

REACTIONS (1)
  - ANGLE CLOSURE GLAUCOMA [None]
